FAERS Safety Report 8146690-1 (Version None)
Quarter: 2012Q1

REPORT INFORMATION
  Report Type: 
  Country: None (occurrence: None)
  Receive Date: 20120217
  Receipt Date: 20120208
  Transmission Date: 20120608
  Serious: No
  Sender: FDA-Public Use
  Company Number: US-ABBOTT-12P-163-0903038-00

PATIENT
  Sex: Female
  Weight: 77.18 kg

DRUGS (1)
  1. SIMCOR [Suspect]
     Indication: PRODUCT USED FOR UNKNOWN INDICATION
     Dosage: 500/40MG, AT BEDTIME
     Dates: start: 20110201

REACTIONS (2)
  - BURNING SENSATION [None]
  - FLUSHING [None]
